FAERS Safety Report 18801849 (Version 4)
Quarter: 2023Q2

REPORT INFORMATION
  Report Type: Spontaneous
  Country: US (occurrence: US)
  Receive Date: 20210128
  Receipt Date: 20230511
  Transmission Date: 20230721
  Serious: Yes (Death, Other)
  Sender: FDA-Public Use
  Company Number: US-GILEAD-2021-0513407

PATIENT
  Age: 31 Year
  Sex: Male

DRUGS (10)
  1. TRUVADA [Suspect]
     Active Substance: EMTRICITABINE\TENOFOVIR DISOPROXIL FUMARATE
     Indication: HIV infection
     Dosage: UNK
     Route: 048
     Dates: start: 2004, end: 2008
  2. TRUVADA [Suspect]
     Active Substance: EMTRICITABINE\TENOFOVIR DISOPROXIL FUMARATE
     Dosage: UNK
     Route: 048
     Dates: start: 2010
  3. KALETRA [Concomitant]
     Active Substance: LOPINAVIR\RITONAVIR
  4. NORVIR [Concomitant]
     Active Substance: RITONAVIR
  5. ACYCLOVIR [Concomitant]
     Active Substance: ACYCLOVIR
  6. AZITHROMYCIN [Concomitant]
     Active Substance: AZITHROMYCIN
  7. CEFUROXIME [Concomitant]
     Active Substance: CEFUROXIME
  8. FLUCONAZOLE [Concomitant]
     Active Substance: FLUCONAZOLE
  9. SULFAMETHOXAZOLE [Concomitant]
     Active Substance: SULFAMETHOXAZOLE
  10. VALTREX [Concomitant]
     Active Substance: VALACYCLOVIR HYDROCHLORIDE

REACTIONS (5)
  - Renal failure [Fatal]
  - Anhedonia [Not Recovered/Not Resolved]
  - Pain [Not Recovered/Not Resolved]
  - Emotional distress [Not Recovered/Not Resolved]
  - Anxiety [Not Recovered/Not Resolved]

NARRATIVE: CASE EVENT DATE: 20100225
